FAERS Safety Report 5560689-0 (Version None)
Quarter: 2007Q4

REPORT INFORMATION
  Report Type: 
  Country: None (occurrence: None)
  Receive Date: 20071215
  Receipt Date: 20071115
  Transmission Date: 20080405
  Serious: Yes (Hospitalization)
  Sender: FDA-Public Use
  Company Number: US-ABBOTT-07P-163-0425015-00

PATIENT
  Sex: Female

DRUGS (3)
  1. HUMIRA [Suspect]
     Indication: RHEUMATOID ARTHRITIS
     Route: 058
     Dates: start: 20071102
  2. OXYGEN [Concomitant]
     Indication: RHEUMATOID ARTHRITIS
     Route: 055
  3. OXYGEN [Concomitant]
     Indication: DYSPNOEA

REACTIONS (2)
  - DYSPNOEA [None]
  - HEART RATE INCREASED [None]
